FAERS Safety Report 5379885-0 (Version None)
Quarter: 2007Q3

REPORT INFORMATION
  Report Type: 
  Country: None (occurrence: None)
  Receive Date: 20070706
  Receipt Date: 20070704
  Transmission Date: 20080115
  Serious: Yes (Death, Other)
  Sender: FDA-Public Use
  Company Number: PHBS2007JP08560

PATIENT
  Age: 9 Year
  Sex: Female

DRUGS (6)
  1. SANDIMMUNE [Suspect]
     Indication: CORD BLOOD TRANSPLANT THERAPY
     Route: 065
  2. PREDNISOLONE [Suspect]
     Indication: CORD BLOOD TRANSPLANT THERAPY
     Dosage: 0.5 MG/KG/DAY
     Route: 065
  3. PREDNISOLONE [Suspect]
     Dosage: 1 MG/KG/DAY
  4. BUSULFAN [Concomitant]
     Dosage: 16 MG/KG
  5. MELPHALAN [Concomitant]
  6. VANCOMYCIN HCL [Suspect]
     Route: 042

REACTIONS (8)
  - ACUTE GRAFT VERSUS HOST DISEASE [None]
  - CONVULSION [None]
  - DEPRESSED LEVEL OF CONSCIOUSNESS [None]
  - DRUG INTERACTION [None]
  - INTERSTITIAL LUNG DISEASE [None]
  - NEUROLOGICAL SYMPTOM [None]
  - PAIN IN EXTREMITY [None]
  - RENAL IMPAIRMENT [None]
